FAERS Safety Report 16766323 (Version 1)
Quarter: 2019Q3

REPORT INFORMATION
  Report Type: Report from Study
  Country: US (occurrence: US)
  Receive Date: 20190903
  Receipt Date: 20190903
  Transmission Date: 20191005
  Serious: Yes (Death)
  Sender: FDA-Public Use
  Company Number: US-TAIHO ONCOLOGY  INC-EU-2019-02719

PATIENT
  Sex: Male

DRUGS (1)
  1. LONSURF [Suspect]
     Active Substance: TIPIRACIL HYDROCHLORIDE\TRIFLURIDINE
     Indication: PRODUCT USED FOR UNKNOWN INDICATION
     Dosage: CURRENT CYCLE UNKNOWN. UNIT DOSE AND FREQUENCY UNKNOWN. TREATMENT WAS SCHEDULED TO DISCONTINUE.
     Route: 048

REACTIONS (5)
  - Fatigue [Unknown]
  - Flatulence [Unknown]
  - Death [Fatal]
  - Diarrhoea [Unknown]
  - Back pain [Unknown]
